FAERS Safety Report 9919301 (Version 2)
Quarter: 2014Q2

REPORT INFORMATION
  Report Type: Spontaneous
  Country: US (occurrence: US)
  Receive Date: 20140224
  Receipt Date: 20140423
  Transmission Date: 20141212
  Serious: Yes (Death, Congenital Anomaly, Other)
  Sender: FDA-Public Use
  Company Number: US-NOVOPROD-400685

PATIENT
  Sex: 0

DRUGS (1)
  1. LEVEMIR FLEXPEN [Suspect]
     Indication: TYPE 1 DIABETES MELLITUS
     Dosage: UNKNOWN
     Route: 064
     Dates: start: 20130923

REACTIONS (3)
  - Anencephaly [Fatal]
  - Spina bifida [Fatal]
  - Foetal exposure during pregnancy [Recovered/Resolved]
